FAERS Safety Report 4388664-2 (Version None)
Quarter: 2004Q2

REPORT INFORMATION
  Report Type: 
  Country: None (occurrence: None)
  Receive Date: 20040624
  Receipt Date: 20040621
  Transmission Date: 20050107
  Serious: Yes (Death)
  Sender: FDA-Public Use
  Company Number: 2004-BP-04825RO

PATIENT
  Age: 42 Year
  Sex: Male

DRUGS (1)
  1. METHADONE HCL [Suspect]
     Indication: PAIN
     Dosage: 30 MG (10 MG, 3 IN 1 D), PO
     Route: 048
     Dates: start: 20040612, end: 20040614

REACTIONS (1)
  - DEATH [None]
